FAERS Safety Report 6249517-8 (Version None)
Quarter: 2009Q2

REPORT INFORMATION
  Report Type: 
  Country: None (occurrence: None)
  Receive Date: 20090629
  Receipt Date: 20090622
  Transmission Date: 20091009
  Serious: Yes (Other)
  Sender: FDA-Public Use
  Company Number: B0580505A

PATIENT
  Sex: Female
  Weight: 58 kg

DRUGS (5)
  1. TYKERB [Suspect]
     Indication: BREAST CANCER
     Route: 048
     Dates: start: 20080715, end: 20090622
  2. CAPECITABINE [Suspect]
     Indication: BREAST CANCER
     Dosage: 1650MG CYCLIC
     Route: 048
     Dates: start: 20080715, end: 20090615
  3. FERRUM [Concomitant]
     Route: 048
  4. CINAL [Concomitant]
     Route: 048
  5. DRENISON [Concomitant]
     Route: 062

REACTIONS (2)
  - ASPARTATE AMINOTRANSFERASE INCREASED [None]
  - HYPERKALAEMIA [None]
